FAERS Safety Report 5406424-8 (Version None)
Quarter: 2007Q3

REPORT INFORMATION
  Report Type: 
  Country: None (occurrence: None)
  Receive Date: 20070713
  Receipt Date: 20070416
  Transmission Date: 20080115
  Serious: Yes (Hospitalization)
  Sender: FDA-Public Use
  Company Number: US-JNJFOC-20070404023

PATIENT
  Age: 23 Year
  Sex: Female
  Weight: 111.3127 kg

DRUGS (2)
  1. ORTHO EVRA [Suspect]
     Indication: CONTRACEPTION
     Dosage: TRANSDERMAL
     Route: 062
     Dates: start: 20040401, end: 20040704
  2. YASMIN [Suspect]
     Indication: CONTRACEPTION
     Dates: start: 20040704, end: 20040715

REACTIONS (1)
  - PULMONARY EMBOLISM [None]
